FAERS Safety Report 17723281 (Version 2)
Quarter: 2020Q2

REPORT INFORMATION
  Report Type: Not Available
  Country: US (occurrence: US)
  Receive Date: 20200429
  Receipt Date: 20200513
  Transmission Date: 20200714
  Serious: Yes (Hospitalization)
  Sender: FDA-Public Use
  Company Number: US-NEUROCRINE BIOSCIENCES INC.-2020NBI01368

PATIENT
  Age: 72 Year
  Sex: Female

DRUGS (14)
  1. BETHANECHOL [Concomitant]
     Active Substance: BETHANECHOL
     Dosage: IN THE MORNING AND NIGHT
  2. CALCIUM/D3 [Concomitant]
     Active Substance: CALCIUM\CHOLECALCIFEROL
     Dosage: 600/800 IU IN THE MORNING AND IN THE NIGHT DAILY
  3. TAMSULOSIN [Concomitant]
     Active Substance: TAMSULOSIN
     Dosage: AT NIGHT
  4. INGREZZA [Suspect]
     Active Substance: VALBENAZINE
     Indication: TARDIVE DYSKINESIA
     Route: 048
     Dates: start: 2019, end: 201912
  5. LORAZEPAM. [Concomitant]
     Active Substance: LORAZEPAM
  6. LORAZEPAM. [Concomitant]
     Active Substance: LORAZEPAM
  7. METHIMAZOLE. [Concomitant]
     Active Substance: METHIMAZOLE
     Dosage: 1 TABLET IN THE MORNING, MONDAY TO FRIDAY
  8. NORTRIPTYLINE [Concomitant]
     Active Substance: NORTRIPTYLINE
     Dosage: AT NIGHT
     Dates: end: 20200422
  9. LITHIUM. [Concomitant]
     Active Substance: LITHIUM
     Indication: BIPOLAR DISORDER
     Dosage: AT NIGHT
  10. BUPROPION. [Concomitant]
     Active Substance: BUPROPION
     Dosage: IN THE MORNING
  11. MEGESTROL [Concomitant]
     Active Substance: MEGESTROL
     Dosage: 5 TABLETS IN THE MORNING AND 5 TABLETS AT NIGHT
  12. INGREZZA [Suspect]
     Active Substance: VALBENAZINE
     Route: 048
     Dates: start: 20191230, end: 20200422
  13. ROSUVASTATIN. [Concomitant]
     Active Substance: ROSUVASTATIN
     Dosage: IN THE MORNING
  14. FAMOTIDINE. [Concomitant]
     Active Substance: FAMOTIDINE
     Dosage: 1 BEFORE BREAKFAST AND 1 BEFORE SUPPER DAILY

REACTIONS (2)
  - Hip fracture [Unknown]
  - Fall [Unknown]

NARRATIVE: CASE EVENT DATE: 20200420
